FAERS Safety Report 23638609 (Version 1)
Quarter: 2024Q1

REPORT INFORMATION
  Report Type: Spontaneous
  Country: US (occurrence: US)
  Receive Date: 20240315
  Receipt Date: 20240315
  Transmission Date: 20240409
  Serious: Yes (Death, Hospitalization, Other)
  Sender: FDA-Public Use
  Company Number: US-SUN PHARMACEUTICAL INDUSTRIES LTD-2024R1-436538

PATIENT
  Age: 49 Year
  Sex: Female

DRUGS (3)
  1. AMBRISENTAN [Suspect]
     Active Substance: AMBRISENTAN
     Indication: Systemic scleroderma
     Dosage: UNK
     Route: 065
  2. SILDENAFIL [Suspect]
     Active Substance: SILDENAFIL
     Indication: Systemic scleroderma
     Dosage: UNK
     Route: 065
  3. TREPROSTINIL [Suspect]
     Active Substance: TREPROSTINIL
     Indication: Systemic scleroderma
     Dosage: UNK
     Route: 065

REACTIONS (4)
  - Condition aggravated [Fatal]
  - Disease progression [Unknown]
  - Cardiac tamponade [Unknown]
  - Pericardial effusion [Unknown]
